FAERS Safety Report 12582549 (Version 2)
Quarter: 2016Q3

REPORT INFORMATION
  Report Type: Report from Study
  Country: CO (occurrence: CO)
  Receive Date: 20160722
  Receipt Date: 20160907
  Transmission Date: 20161109
  Serious: Yes (Other)
  Sender: FDA-Public Use
  Company Number: PHHY2016CO038099

PATIENT
  Sex: Female
  Weight: 74 kg

DRUGS (5)
  1. CARBAMAZEPINE. [Concomitant]
     Active Substance: CARBAMAZEPINE
     Dosage: 400 MG, Q12H (TWO TABLETS OF 200 MG, EVERY 12 HOURS)
     Route: 048
  2. IMIPRAMINE [Concomitant]
     Active Substance: IMIPRAMINE
     Indication: PRODUCT USED FOR UNKNOWN INDICATION
     Dosage: 25 MG, QD
     Route: 048
  3. CARBAMAZEPINE. [Concomitant]
     Active Substance: CARBAMAZEPINE
     Indication: SEIZURE
     Dosage: 60 MG, TID
     Route: 048
  4. ACETAMINOPHEN. [Concomitant]
     Active Substance: ACETAMINOPHEN
     Indication: PAIN
     Dosage: 500 MG, PRN
     Route: 048
  5. REVOLADE [Suspect]
     Active Substance: ELTROMBOPAG
     Indication: IMMUNE THROMBOCYTOPENIC PURPURA
     Dosage: 50 MG, QD (TWO TABLETS OF 25 MG ONCE A DAY)
     Route: 048
     Dates: start: 20160209

REACTIONS (9)
  - Fall [Unknown]
  - Procedural pain [Unknown]
  - Depressed mood [Unknown]
  - Lymphoma [Unknown]
  - Abdominal pain upper [Unknown]
  - Malignant neoplasm of lacrimal gland [Unknown]
  - Eating disorder [Unknown]
  - Dizziness [Unknown]
  - Headache [Unknown]
